FAERS Safety Report 23628119 (Version 2)
Quarter: 2024Q2

REPORT INFORMATION
  Report Type: Report from Study
  Country: SA (occurrence: SA)
  Receive Date: 20240313
  Receipt Date: 20240528
  Transmission Date: 20240716
  Serious: Yes (Other)
  Sender: FDA-Public Use
  Company Number: SA-GSK-SA2024EME030890

PATIENT

DRUGS (1)
  1. MEPOLIZUMAB [Suspect]
     Active Substance: MEPOLIZUMAB
     Indication: Asthma
     Dosage: 100 MG, MO
     Dates: start: 20230320

REACTIONS (7)
  - Pneumonia [Unknown]
  - Tonsillitis [Unknown]
  - Pyrexia [Unknown]
  - Osteoarthritis [Unknown]
  - Feeling hot [Unknown]
  - Symptom recurrence [Unknown]
  - Arthralgia [Not Recovered/Not Resolved]

NARRATIVE: CASE EVENT DATE: 20240519
